FAERS Safety Report 9097092 (Version 2)
Quarter: 2013Q1

REPORT INFORMATION
  Report Type: Spontaneous
  Country: GB (occurrence: None)
  Receive Date: 20130123
  Receipt Date: 20130208
  Transmission Date: 20140127
  Serious: Yes (Other)
  Sender: FDA-Public Use
  Company Number: AUR-APL-2013-00801

PATIENT
  Sex: Female

DRUGS (1)
  1. SIMVASTATIN (SIMVASTATIN) [Suspect]
     Indication: BLOOD CHOLESTEROL INCREASED
     Route: 050
     Dates: start: 20090212, end: 20100416

REACTIONS (3)
  - Ectopic pregnancy [None]
  - Abortion spontaneous [None]
  - Exposure via body fluid [None]
